FAERS Safety Report 7080853-1 (Version None)
Quarter: 2010Q4

REPORT INFORMATION
  Report Type: 
  Country: None (occurrence: None)
  Receive Date: 20101103
  Receipt Date: 20101025
  Transmission Date: 20110411
  Serious: Yes (Hospitalization, Other)
  Sender: FDA-Public Use
  Company Number: JP-PFIZER INC-2010122588

PATIENT
  Age: 74 Year
  Sex: Female

DRUGS (3)
  1. ZOLOFT [Suspect]
     Indication: DEPRESSION
     Dosage: UNK
     Route: 048
     Dates: start: 20100925, end: 20100101
  2. ZOLOFT [Suspect]
     Dosage: 25 MG/DAY
     Dates: start: 20101013
  3. ROZEREM [Suspect]
     Dosage: UNK
     Route: 048

REACTIONS (7)
  - ALTERED STATE OF CONSCIOUSNESS [None]
  - BRADYCARDIA [None]
  - DECREASED APPETITE [None]
  - DEPRESSION [None]
  - HYPONATRAEMIA [None]
  - PNEUMONIA ASPIRATION [None]
  - VOMITING [None]
